FAERS Safety Report 8669531 (Version 2)
Quarter: 2017Q3

REPORT INFORMATION
  Report Type: Spontaneous
  Country: US (occurrence: US)
  Receive Date: 20120718
  Receipt Date: 20170907
  Transmission Date: 20171128
  Serious: No
  Sender: FDA-Public Use
  Company Number: US-PFIZER INC-2012170747

PATIENT
  Age: 47 Year
  Sex: Female

DRUGS (1)
  1. DEMEROL [Suspect]
     Active Substance: MEPERIDINE HYDROCHLORIDE
     Dosage: UNK
     Route: 048

REACTIONS (4)
  - Pruritus [Unknown]
  - Vision blurred [Unknown]
  - Drug hypersensitivity [Unknown]
  - Urticaria [Unknown]
